FAERS Safety Report 18317355 (Version 1)
Quarter: 2020Q3

REPORT INFORMATION
  Report Type: Other
  Country: TH (occurrence: TH)
  Receive Date: 20200928
  Receipt Date: 20200928
  Transmission Date: 20201103
  Serious: Yes (Other)
  Sender: FDA-Public Use
  Company Number: TH-ROCHE-2682880

PATIENT

DRUGS (2)
  1. MYCOPHENOLATE MOFETIL. [Suspect]
     Active Substance: MYCOPHENOLATE MOFETIL
     Indication: LUPUS NEPHRITIS
     Dosage: 800 TO 1,200 MG/M2/DAY FOR SIX MONTHS
     Route: 048
  2. PREDNISOLONE. [Concomitant]
     Active Substance: PREDNISOLONE

REACTIONS (7)
  - Infection [Unknown]
  - Candida infection [Unknown]
  - Leukopenia [Unknown]
  - Bacterial infection [Unknown]
  - Alopecia [Unknown]
  - Cystitis haemorrhagic [Unknown]
  - Paronychia [Unknown]
